FAERS Safety Report 8401529 (Version 5)
Quarter: 2012Q4

REPORT INFORMATION
  Report Type: 
  Country: US (occurrence: US)
  Receive Date: 20120210
  Receipt Date: 20121109
  Transmission Date: 20130627
  Serious: Yes (Hospitalization)
  Sender: FDA-Public Use
  Company Number: PHEH2012US003311

PATIENT
  Age: 44 Year
  Sex: Female

DRUGS (9)
  1. AFINITOR [Suspect]
     Indication: TUBEROUS SCLEROSIS
     Dosage: 5 mg, daily
     Route: 048
     Dates: start: 20110823, end: 20120123
  2. AFINITOR [Suspect]
     Route: 048
     Dates: start: 20120223
  3. AFINITOR [Suspect]
     Dosage: 2.5 mg, daily
     Route: 048
     Dates: start: 20120330
  4. AFINITOR [Suspect]
     Dosage: 10 mg, daily
     Route: 048
  5. DEPAKOTE [Concomitant]
  6. ALEVE [Concomitant]
  7. ASPIRIN [Concomitant]
  8. KEPPRA [Concomitant]
  9. CARNITINE [Concomitant]

REACTIONS (6)
  - Gastrointestinal motility disorder [Unknown]
  - Constipation [Recovered/Resolved]
  - Platelet count decreased [Not Recovered/Not Resolved]
  - Anxiety [Recovered/Resolved]
  - Wrong technique in drug usage process [Unknown]
  - Drug level decreased [Unknown]
